FAERS Safety Report 18688071 (Version 1)
Quarter: 2020Q4

REPORT INFORMATION
  Report Type: Spontaneous
  Country: US (occurrence: US)
  Receive Date: 20201231
  Receipt Date: 20201231
  Transmission Date: 20210114
  Serious: No
  Sender: FDA-Public Use
  Company Number: US-BAYER-2020-283577

PATIENT
  Age: 67 Year
  Sex: Female

DRUGS (5)
  1. MIRALAX [Suspect]
     Active Substance: POLYETHYLENE GLYCOL 3350
     Indication: GASTROINTESTINAL DISORDER
     Dosage: 0.5 DF
     Route: 048
     Dates: start: 202012, end: 202012
  2. BAYER LOW DOSE [Suspect]
     Active Substance: ASPIRIN
     Indication: PROPHYLAXIS
     Dosage: 1 DF, QD
     Route: 048
  3. IRON [Concomitant]
     Active Substance: IRON
  4. METOPROLOL SUCCINATE. [Concomitant]
     Active Substance: METOPROLOL SUCCINATE
  5. MIRALAX [Suspect]
     Active Substance: POLYETHYLENE GLYCOL 3350
     Indication: GASTROINTESTINAL DISORDER
     Dosage: 1 DF
     Route: 048
     Dates: start: 202012, end: 202012

REACTIONS (5)
  - Product use in unapproved indication [Unknown]
  - Genital pain [Unknown]
  - Incorrect dose administered [Unknown]
  - Muscle spasms [Unknown]
  - Bladder pain [Unknown]

NARRATIVE: CASE EVENT DATE: 202012
